FAERS Safety Report 13928797 (Version 1)
Quarter: 2017Q3

REPORT INFORMATION
  Report Type: Spontaneous
  Country: US (occurrence: US)
  Receive Date: 20170901
  Receipt Date: 20170901
  Transmission Date: 20171127
  Serious: No
  Sender: FDA-Public Use
  Company Number: US-ASTRAZENECA-2017SE89177

PATIENT
  Sex: Female

DRUGS (2)
  1. SYMBICORT [Suspect]
     Active Substance: BUDESONIDE\FORMOTEROL FUMARATE DIHYDRATE
     Indication: CHRONIC OBSTRUCTIVE PULMONARY DISEASE
     Dosage: 80/4.5UG,UNKNOWN UNKNOWN
     Route: 055
     Dates: start: 201607, end: 201610
  2. SYMBICORT [Suspect]
     Active Substance: BUDESONIDE\FORMOTEROL FUMARATE DIHYDRATE
     Indication: CHRONIC OBSTRUCTIVE PULMONARY DISEASE
     Dosage: 160/4.5,2 PUFFS, TWO TIMES A DAY UNKNOWN
     Route: 055
     Dates: start: 201610

REACTIONS (3)
  - Intentional device misuse [Unknown]
  - Dyspnoea [Not Recovered/Not Resolved]
  - Device issue [Unknown]
